FAERS Safety Report 13884455 (Version 2)
Quarter: 2017Q3

REPORT INFORMATION
  Report Type: Spontaneous
  Country: JP (occurrence: JP)
  Receive Date: 20170821
  Receipt Date: 20170828
  Transmission Date: 20171127
  Serious: Yes (Other)
  Sender: FDA-Public Use
  Company Number: JP-BEH-2017082989

PATIENT
  Age: 50 Year
  Sex: Male

DRUGS (1)
  1. FIBRIN SEALANT (INN) [Suspect]
     Active Substance: FIBRIN SEALANT
     Indication: OESOPHAGOBRONCHIAL FISTULA
     Route: 065

REACTIONS (2)
  - Foreign body in respiratory tract [Unknown]
  - Asphyxia [Unknown]
